FAERS Safety Report 8918807 (Version 1)
Quarter: 2012Q4

REPORT INFORMATION
  Report Type: 
  Country: US (occurrence: US)
  Receive Date: 20121120
  Receipt Date: 20121120
  Transmission Date: 20130627
  Serious: No
  Sender: FDA-Public Use
  Company Number: US-ASTRAZENECA-2012SE21347

PATIENT
  Age: 58 Year
  Sex: Male

DRUGS (4)
  1. NEXIUM [Suspect]
     Route: 048
     Dates: start: 200612, end: 20120123
  2. PRILOSEC [Suspect]
     Route: 048
  3. PROTONIX [Concomitant]
  4. REGLAN [Concomitant]

REACTIONS (10)
  - Gastrooesophageal reflux disease [Unknown]
  - Dyspnoea [Unknown]
  - Asthenia [Unknown]
  - Regurgitation [Unknown]
  - Gastrooesophageal reflux disease [Unknown]
  - Dyspepsia [Unknown]
  - Malaise [Unknown]
  - Vomiting [Unknown]
  - Drug ineffective [Unknown]
  - Intentional drug misuse [Unknown]
